FAERS Safety Report 16635538 (Version 1)
Quarter: 2019Q3

REPORT INFORMATION
  Report Type: Spontaneous
  Country: CA (occurrence: CA)
  Receive Date: 20190726
  Receipt Date: 20190726
  Transmission Date: 20191004
  Serious: Yes (Other)
  Sender: FDA-Public Use
  Company Number: CA-TEVA-2019-CA-1083491

PATIENT
  Age: 76 Year
  Sex: Female

DRUGS (4)
  1. BUPIVACAINE. [Concomitant]
     Active Substance: BUPIVACAINE
     Dosage: SOLUTION BLOCK/INFILTRATION
  2. FENTANYL. [Interacting]
     Active Substance: FENTANYL
     Indication: MAINTENANCE OF ANAESTHESIA
     Route: 042
  3. MORPHINE SULFATE INJECTION 1MG/ML [Interacting]
     Active Substance: MORPHINE SULFATE
     Indication: ANAESTHETIC PREMEDICATION
     Dosage: SOLUTION INTRAVENOUS
     Route: 065
  4. FENTANYL. [Suspect]
     Active Substance: FENTANYL
     Indication: MAINTENANCE OF ANAESTHESIA
     Route: 065

REACTIONS (2)
  - Drug interaction [Recovered/Resolved]
  - Sinus bradycardia [Recovered/Resolved]
